APPROVED DRUG PRODUCT: MONISTAT
Active Ingredient: MICONAZOLE
Strength: 10MG/ML
Dosage Form/Route: INJECTABLE;INJECTION
Application: N018040 | Product #001
Applicant: JANSSEN PHARMACEUTICA PRODUCTS LP
Approved: Approved Prior to Jan 1, 1982 | RLD: No | RS: No | Type: DISCN